FAERS Safety Report 20089824 (Version 1)
Quarter: 2021Q4

REPORT INFORMATION
  Report Type: Spontaneous
  Country: JP (occurrence: JP)
  Receive Date: 20211119
  Receipt Date: 20211119
  Transmission Date: 20220303
  Serious: Yes (Hospitalization)
  Sender: FDA-Public Use
  Company Number: JP-LUPIN PHARMACEUTICALS INC.-2021-22673

PATIENT
  Age: 56 Year
  Sex: Male

DRUGS (6)
  1. VANCOMYCIN [Suspect]
     Active Substance: VANCOMYCIN
     Indication: Rectal abscess
     Dosage: 1 GRAM, BID
     Route: 042
  2. DORIPENEM [Suspect]
     Active Substance: DORIPENEM
     Indication: Febrile neutropenia
     Dosage: 1 GRAM, TID
     Route: 042
  3. DORIPENEM [Suspect]
     Active Substance: DORIPENEM
     Indication: Anal abscess
  4. HUMAN IMMUNOGLOBULIN G [Suspect]
     Active Substance: HUMAN IMMUNOGLOBULIN G
     Indication: Rectal abscess
     Dosage: 5 GRAM, QD (FOR 3 DAYS)
     Route: 042
  5. DAUNORUBICIN [Concomitant]
     Active Substance: DAUNORUBICIN
     Indication: Acute myeloid leukaemia
     Dosage: 38 MILLIGRAM/SQ. METER (FOR 5 DAYS)
     Route: 042
  6. CYTARABINE [Concomitant]
     Active Substance: CYTARABINE
     Indication: Acute myeloid leukaemia
     Dosage: 100 MILLIGRAM/SQ. METER (FOR 7 DAYS)
     Route: 042

REACTIONS (1)
  - Drug ineffective [Unknown]
